FAERS Safety Report 6161794-0 (Version None)
Quarter: 2009Q2

REPORT INFORMATION
  Report Type: 
  Country: None (occurrence: None)
  Receive Date: 20090421
  Receipt Date: 20090406
  Transmission Date: 20091009
  Serious: Yes (Disabling)
  Sender: FDA-Public Use
  Company Number: CL-ROCHE-622608

PATIENT
  Age: 19 Year
  Sex: Male
  Weight: 70 kg

DRUGS (1)
  1. ROACUTAN [Suspect]
     Indication: ACNE
     Route: 048
     Dates: start: 20080601, end: 20090201

REACTIONS (3)
  - ABASIA [None]
  - MYOSITIS OSSIFICANS [None]
  - PAIN IN EXTREMITY [None]
